FAERS Safety Report 7152749-8 (Version None)
Quarter: 2010Q4

REPORT INFORMATION
  Report Type: 
  Country: None (occurrence: None)
  Receive Date: 20101123
  Receipt Date: 20101021
  Transmission Date: 20110411
  Serious: No
  Sender: FDA-Public Use
  Company Number: 020800

PATIENT
  Sex: Female
  Weight: 77 kg

DRUGS (3)
  1. CIMZIA [Suspect]
     Indication: CROHN'S DISEASE
     Dosage: (400 MG 1X/28 DAYS SUBCUTANEOUS)
     Route: 058
     Dates: start: 20100228
  2. IMRUAN /00001501/ [Concomitant]
  3. CELEXA [Concomitant]

REACTIONS (3)
  - ABDOMINAL PAIN [None]
  - ABSCESS [None]
  - FISTULA [None]
